FAERS Safety Report 22540146 (Version 1)
Quarter: 2023Q2

REPORT INFORMATION
  Report Type: Spontaneous
  Country: US (occurrence: None)
  Receive Date: 20230607
  Receipt Date: 20230607
  Transmission Date: 20230722
  Serious: Yes (Hospitalization)
  Sender: FDA-Public Use
  Company Number: None

PATIENT
  Sex: Female

DRUGS (3)
  1. TADALAFIL [Suspect]
     Active Substance: TADALAFIL
     Dosage: OTHER QUANTITY : 2-20MG;?FREQUENCY : DAILY;?
     Route: 048
     Dates: start: 20220310
  2. AMBRISENTAN [Suspect]
     Active Substance: AMBRISENTAN
     Indication: Pulmonary arterial hypertension
     Dosage: FREQUENCY : DAILY;?
     Route: 048
     Dates: start: 20220313
  3. TYVASO DPI [Suspect]
     Active Substance: TREPROSTINIL

REACTIONS (4)
  - Headache [None]
  - Oedema peripheral [None]
  - Oedema peripheral [None]
  - Gastrointestinal oedema [None]
